FAERS Safety Report 13918794 (Version 2)
Quarter: 2017Q4

REPORT INFORMATION
  Report Type: Spontaneous
  Country: US (occurrence: US)
  Receive Date: 20170830
  Receipt Date: 20171108
  Transmission Date: 20180320
  Serious: Yes (Other)
  Sender: FDA-Public Use
  Company Number: US-BRISTOL-MYERS SQUIBB COMPANY-BMS-2017-075941

PATIENT
  Age: 75 Year
  Sex: Female

DRUGS (5)
  1. PROPARACAINE                       /00143101/ [Concomitant]
     Indication: ANAESTHESIA
     Dosage: UNK
     Route: 048
     Dates: start: 20170504, end: 20170504
  2. LIDOCAINE. [Concomitant]
     Active Substance: LIDOCAINE
     Indication: ANAESTHESIA
     Dosage: UNK
     Route: 048
     Dates: start: 20170504, end: 20170504
  3. KENALOG-40 [Suspect]
     Active Substance: TRIAMCINOLONE ACETONIDE
     Indication: MACULAR OEDEMA
     Dosage: 2 MG, ONE TIME DOSE
     Route: 047
     Dates: start: 20170504, end: 20170504
  4. BETADINE [Concomitant]
     Active Substance: POVIDONE-IODINE
     Indication: ANAESTHESIA
     Dosage: UNK
     Route: 048
     Dates: start: 20170504, end: 20170504
  5. TETRACAINE. [Concomitant]
     Active Substance: TETRACAINE
     Indication: ANAESTHESIA
     Dosage: UNK
     Route: 048
     Dates: start: 20170504, end: 20170504

REACTIONS (2)
  - Product use issue [Unknown]
  - Endophthalmitis [Recovered/Resolved]

NARRATIVE: CASE EVENT DATE: 20170505
